FAERS Safety Report 25488767 (Version 2)
Quarter: 2025Q3

REPORT INFORMATION
  Report Type: Spontaneous
  Country: GB (occurrence: GB)
  Receive Date: 20250627
  Receipt Date: 20250924
  Transmission Date: 20251020
  Serious: Yes (Life-Threatening, Hospitalization, Other)
  Sender: BRISTOL-MYERS SQUIBB COMPANY
  Company Number: GB-BRISTOL-MYERS SQUIBB COMPANY-2025-090864

PATIENT
  Age: 86 Year
  Sex: Male

DRUGS (1)
  1. NIVOLUMAB\RELATLIMAB [Suspect]
     Active Substance: NIVOLUMAB\RELATLIMAB
     Indication: Malignant melanoma

REACTIONS (3)
  - Immune-mediated myasthenia gravis [Unknown]
  - Immune-mediated myocarditis [Unknown]
  - Immune-mediated myositis [Unknown]
